FAERS Safety Report 5778881-9 (Version None)
Quarter: 2008Q2

REPORT INFORMATION
  Report Type: 
  Country: None (occurrence: None)
  Receive Date: 20080617
  Receipt Date: 20080609
  Transmission Date: 20081010
  Serious: Yes (Hospitalization)
  Sender: FDA-Public Use
  Company Number: 163-21880-08040069

PATIENT
  Age: 13 Year
  Sex: Female
  Weight: 58.6 kg

DRUGS (5)
  1. REVLIMID [Suspect]
     Indication: BONE SARCOMA
     Dosage: 70 MG/M2, DAILY, ON DAYS 1-21, EVERY 28 DAYS, ORAL
     Route: 048
     Dates: start: 20071219, end: 20080317
  2. ACETMINOPHEN (PARACETAMOL) [Concomitant]
  3. NAPROSYN [Concomitant]
  4. ACETAMINOPHEN [Concomitant]
  5. MORPHINE [Concomitant]

REACTIONS (3)
  - BENIGN INTRACRANIAL HYPERTENSION [None]
  - PAPILLOEDEMA [None]
  - PHOTOPHOBIA [None]
